FAERS Safety Report 14024624 (Version 2)
Quarter: 2017Q4

REPORT INFORMATION
  Report Type: Spontaneous
  Country: DK (occurrence: DK)
  Receive Date: 20170929
  Receipt Date: 20171009
  Transmission Date: 20180321
  Serious: Yes (Hospitalization, Other)
  Sender: FDA-Public Use
  Company Number: DK-JNJFOC-20170922682

PATIENT
  Age: 38 Year
  Sex: Female

DRUGS (1)
  1. CILEST [Suspect]
     Active Substance: ETHINYL ESTRADIOL\NORGESTIMATE
     Indication: CONTRACEPTION
     Route: 065
     Dates: start: 2013, end: 20160201

REACTIONS (10)
  - Extrasystoles [Unknown]
  - Chest pain [Recovered/Resolved]
  - Pulmonary embolism [Recovered/Resolved]
  - Memory impairment [Recovered/Resolved]
  - Self-medication [Unknown]
  - Musculoskeletal pain [Unknown]
  - International normalised ratio decreased [Unknown]
  - Mitral valve incompetence [Unknown]
  - Cardiac arrest [Recovered/Resolved]
  - Depressed mood [Recovering/Resolving]

NARRATIVE: CASE EVENT DATE: 2014
